FAERS Safety Report 12396434 (Version 1)
Quarter: 2016Q2

REPORT INFORMATION
  Report Type: Report from Study
  Country: US (occurrence: US)
  Receive Date: 20160524
  Receipt Date: 20160524
  Transmission Date: 20160815
  Serious: Yes (Death)
  Sender: FDA-Public Use
  Company Number: US-BAUSCH-BL-2016-002751

PATIENT
  Age: 45 Year
  Sex: Male
  Weight: 74.91 kg

DRUGS (9)
  1. XENAZINE [Suspect]
     Active Substance: TETRABENAZINE
     Dosage: ONE TABLET IN MORNING AND NOON AND 25 MG AT NIGHT
     Route: 048
     Dates: start: 20160429
  2. MELATONIN [Concomitant]
     Active Substance: MELATONIN
     Indication: SLEEP DISORDER
     Dosage: NIGHTLY
  3. XENAZINE [Suspect]
     Active Substance: TETRABENAZINE
     Route: 048
     Dates: start: 20160225
  4. BACLOFEN. [Concomitant]
     Active Substance: BACLOFEN
     Indication: NECK PAIN
  5. XENAZINE [Suspect]
     Active Substance: TETRABENAZINE
     Route: 048
     Dates: start: 201601
  6. XENAZINE [Suspect]
     Active Substance: TETRABENAZINE
     Dosage: 12.5MG QAM, 12.5MG MID-DAY, 25MG IN THE EVENING
     Route: 048
     Dates: start: 2016, end: 20160217
  7. XENAZINE [Suspect]
     Active Substance: TETRABENAZINE
     Dosage: DOSE WAS INCREASED TO 12.5 MG QAM, 12.5 MG MID-DAY, 25 MG IN THE EVENING AS A TRIAL
     Route: 048
     Dates: start: 20160217
  8. XENAZINE [Suspect]
     Active Substance: TETRABENAZINE
     Indication: HUNTINGTON^S DISEASE
     Dosage: 1 TABLET BY MOUTH DAILY
     Route: 048
     Dates: start: 20160110
  9. VALIUM [Concomitant]
     Active Substance: DIAZEPAM
     Indication: SLEEP DISORDER
     Dosage: NIGHTLY

REACTIONS (9)
  - Drug effect incomplete [Not Recovered/Not Resolved]
  - Chorea [Not Recovered/Not Resolved]
  - Dysphagia [Not Recovered/Not Resolved]
  - Dyspnoea [Not Recovered/Not Resolved]
  - Diarrhoea [Not Recovered/Not Resolved]
  - Completed suicide [Fatal]
  - Throat irritation [Not Recovered/Not Resolved]
  - Aphasia [Not Recovered/Not Resolved]
  - Somnolence [Not Recovered/Not Resolved]

NARRATIVE: CASE EVENT DATE: 2016
